FAERS Safety Report 4850437-1 (Version None)
Quarter: 2005Q4

REPORT INFORMATION
  Report Type: 
  Country: None (occurrence: None)
  Receive Date: 20051123
  Receipt Date: 20051020
  Transmission Date: 20060501
  Serious: No
  Sender: FDA-Public Use
  Company Number: TPA2005A01300

PATIENT
  Age: 43 Year
  Sex: Male
  Weight: 83.4619 kg

DRUGS (2)
  1. ROZEREM [Suspect]
     Indication: SLEEP DISORDER
     Dosage: 8 MG, HS, PER ORAL
     Route: 048
     Dates: start: 20051019
  2. ROZEREM [Suspect]
     Indication: STRESS
     Dosage: 8 MG, HS, PER ORAL
     Route: 048
     Dates: start: 20051019

REACTIONS (3)
  - DRUG INEFFECTIVE [None]
  - OVERDOSE [None]
  - SOMNOLENCE [None]
